FAERS Safety Report 5525481-1 (Version None)
Quarter: 2007Q4

REPORT INFORMATION
  Report Type: 
  Country: None (occurrence: None)
  Receive Date: 20071126
  Receipt Date: 20071112
  Transmission Date: 20080405
  Serious: Yes (Hospitalization)
  Sender: FDA-Public Use
  Company Number: US-AMGEN-US237027

PATIENT
  Sex: Female
  Weight: 81.3 kg

DRUGS (3)
  1. PROCRIT [Suspect]
     Indication: ANAEMIA
     Route: 058
     Dates: start: 20060101
  2. ENBREL [Concomitant]
     Indication: ARTHRITIS
     Route: 058
  3. PRANDIN [Concomitant]
     Route: 048

REACTIONS (2)
  - DEEP VEIN THROMBOSIS [None]
  - RECTAL HAEMORRHAGE [None]
